FAERS Safety Report 13739047 (Version 1)
Quarter: 2017Q3

REPORT INFORMATION
  Report Type: Spontaneous
  Country: US (occurrence: US)
  Receive Date: 20170710
  Receipt Date: 20170710
  Transmission Date: 20171127
  Serious: Yes (Other)
  Sender: FDA-Public Use
  Company Number: US-SAOL THERAPEUTICS-2017SAO00958

PATIENT
  Age: 52 Year
  Sex: Female

DRUGS (3)
  1. DILAUDID [Suspect]
     Active Substance: HYDROMORPHONE HYDROCHLORIDE
     Dosage: 2.998 MG, \DAY
     Route: 037
     Dates: start: 20170308
  2. BACLOFEN. [Suspect]
     Active Substance: BACLOFEN
     Dosage: 29.98 ?G, \DAY
     Route: 037
     Dates: start: 20170308
  3. BUPIVICAINE [Suspect]
     Active Substance: BUPIVACAINE
     Dosage: 2.998 MG, \DAY
     Route: 037
     Dates: start: 20170308

REACTIONS (2)
  - Implant site pain [Unknown]
  - Weight decreased [Unknown]

NARRATIVE: CASE EVENT DATE: 20170320
